FAERS Safety Report 25623869 (Version 1)
Quarter: 2025Q3

REPORT INFORMATION
  Report Type: Spontaneous
  Country: US (occurrence: US)
  Receive Date: 20250730
  Receipt Date: 20250730
  Transmission Date: 20251020
  Serious: No
  Sender: Tarsus Pharmaceuticals
  Company Number: US-TARSUS PHARMACEUTICALS-TSP-US-2025-000436

PATIENT

DRUGS (1)
  1. XDEMVY [Suspect]
     Active Substance: LOTILANER
     Indication: Ocular demodicosis
     Dosage: 1 DROP, BID (ONE DROP INTO BOTH EYES TWICE A DAY FOR SIX WEEKS)
     Route: 047

REACTIONS (4)
  - Ocular hyperaemia [Unknown]
  - Eye swelling [Unknown]
  - Periorbital swelling [Unknown]
  - Rash [Unknown]
